FAERS Safety Report 22246625 (Version 2)
Quarter: 2024Q1

REPORT INFORMATION
  Report Type: Spontaneous
  Country: PT (occurrence: PT)
  Receive Date: 20230424
  Receipt Date: 20240308
  Transmission Date: 20240410
  Serious: Yes (Hospitalization, Other)
  Sender: FDA-Public Use
  Company Number: PT-Hikma Pharmaceuticals-PT-H14001-23-01012

PATIENT
  Age: 52 Year
  Sex: Male

DRUGS (17)
  1. OXALIPLATIN [Suspect]
     Active Substance: OXALIPLATIN
     Indication: Thyroid cancer metastatic
     Dosage: 100 MILLIGRAM/SQ. METER, BIWEEKLY
     Route: 065
     Dates: start: 201607
  2. OXALIPLATIN [Suspect]
     Active Substance: OXALIPLATIN
     Indication: Follicular thyroid cancer
     Dosage: REDUCED BY 20%
     Route: 065
     Dates: end: 201701
  3. OXALIPLATIN [Suspect]
     Active Substance: OXALIPLATIN
     Dosage: 27 CYCLES WITH EACH CYCLE 2 TO 3 WEEKS
     Route: 065
     Dates: start: 201806, end: 202006
  4. GEMCITABINE [Suspect]
     Active Substance: GEMCITABINE
     Indication: Thyroid cancer metastatic
     Dosage: 1000 MILLIGRAM/SQ. METER
     Route: 065
     Dates: start: 201607, end: 201701
  5. GEMCITABINE [Suspect]
     Active Substance: GEMCITABINE
     Indication: Follicular thyroid cancer
     Dosage: 27 CYCLES WITH EACH CYCLE EVERY 2 TO 3 WEEKS
     Route: 065
     Dates: start: 201806, end: 202006
  6. GEMCITABINE [Suspect]
     Active Substance: GEMCITABINE
     Dosage: 1000 MILLIGRAM/SQ. METER, BIWEEKLY
     Route: 065
     Dates: start: 201607
  7. SORAFENIB [Suspect]
     Active Substance: SORAFENIB
     Indication: Follicular thyroid cancer
     Dosage: 400 MILLIGRAM, BID  (0.5)
     Route: 065
  8. SORAFENIB [Suspect]
     Active Substance: SORAFENIB
     Dosage: 600 MILLIGRAM, QD
     Route: 065
     Dates: end: 201502
  9. SUNITINIB [Suspect]
     Active Substance: SUNITINIB
     Indication: Follicular thyroid cancer
     Dosage: 37.5 MILLIGRAM, QD
     Route: 065
  10. SUNITINIB [Suspect]
     Active Substance: SUNITINIB
     Dosage: UNK
     Route: 065
     Dates: start: 201510
  11. SUNITINIB [Suspect]
     Active Substance: SUNITINIB
     Dosage: 50 MILLIGRAM, QD (4 WEEKS ON, 2 WEEKS OFF)
     Route: 065
  12. DOCETAXEL [Suspect]
     Active Substance: DOCETAXEL\DOCETAXEL ANHYDROUS
     Indication: Follicular thyroid cancer
     Dosage: 60 MILLIGRAM/SQ. METER
     Route: 065
     Dates: start: 201502, end: 201505
  13. DOXORUBICIN [Suspect]
     Active Substance: DOXORUBICIN
     Indication: Follicular thyroid cancer
     Dosage: 50 MILLIGRAM/SQ. METER
     Route: 065
     Dates: start: 201502, end: 201505
  14. LENVATINIB [Suspect]
     Active Substance: LENVATINIB
     Indication: Follicular thyroid cancer
     Dosage: 24 MILLIGRAM, QD
     Route: 065
     Dates: start: 201802
  15. OXYGEN [Concomitant]
     Active Substance: OXYGEN
     Indication: Dyspnoea
     Dosage: UNKNOWN
     Route: 065
  16. LOSARTAN [Concomitant]
     Active Substance: LOSARTAN
     Indication: Hypertension
     Dosage: UNK
     Route: 065
  17. HYDROCHLOROTHIAZIDE [Concomitant]
     Active Substance: HYDROCHLOROTHIAZIDE
     Indication: Hypertension
     Dosage: UNK
     Route: 065

REACTIONS (12)
  - Superior vena cava syndrome [Unknown]
  - Thyroglobulin increased [Recovered/Resolved]
  - Peripheral sensory neuropathy [Unknown]
  - Pneumonia [Unknown]
  - Haematotoxicity [Unknown]
  - Off label use [Unknown]
  - Asthenia [Unknown]
  - Decreased appetite [Unknown]
  - Diarrhoea [Unknown]
  - Fatigue [Unknown]
  - Haemoptysis [Unknown]
  - Drug ineffective [Unknown]

NARRATIVE: CASE EVENT DATE: 20191201
